FAERS Safety Report 12073707 (Version 1)
Quarter: 2016Q1

REPORT INFORMATION
  Report Type: Spontaneous
  Country: PH (occurrence: PH)
  Receive Date: 20160212
  Receipt Date: 20160212
  Transmission Date: 20160526
  Serious: Yes (Hospitalization)
  Sender: FDA-Public Use
  Company Number: PH-009507513-1602PHL005517

PATIENT
  Age: 65 Year
  Sex: Female

DRUGS (4)
  1. ATORVASTATIN [Concomitant]
     Active Substance: ATORVASTATIN
     Indication: BLOOD CHOLESTEROL INCREASED
     Dosage: HALF TABLET
  2. JANUMET XR [Suspect]
     Active Substance: METFORMIN HYDROCHLORIDE\SITAGLIPTIN PHOSPHATE
     Indication: DIABETES MELLITUS
     Dosage: 1 TABLE 100/1000 MG, ONCE A DAY
     Route: 048
     Dates: start: 201507
  3. KENZAR [Concomitant]
     Indication: HYPERTENSION
     Dosage: 50 MG, QD
  4. CARDIPRES [Concomitant]
     Indication: CARDIAC DISORDER
     Dosage: UNK

REACTIONS (3)
  - Intestinal mass [Unknown]
  - General physical health deterioration [Unknown]
  - Biliary tract disorder [Unknown]

NARRATIVE: CASE EVENT DATE: 20151023
